FAERS Safety Report 20491516 (Version 4)
Quarter: 2022Q4

REPORT INFORMATION
  Report Type: Spontaneous
  Country: US (occurrence: None)
  Receive Date: 20220218
  Receipt Date: 20221028
  Transmission Date: 20230112
  Serious: Yes (Death)
  Sender: FDA-Public Use
  Company Number: US-ROCHE-3023959

PATIENT
  Age: 86 Year
  Sex: Female

DRUGS (2)
  1. ERIVEDGE [Suspect]
     Active Substance: VISMODEGIB
     Indication: Lung neoplasm malignant
     Route: 048
     Dates: start: 20220105
  2. ERIVEDGE [Suspect]
     Active Substance: VISMODEGIB
     Indication: Lung neoplasm malignant
     Route: 048
     Dates: start: 20220105

REACTIONS (2)
  - Illness [Fatal]
  - Off label use [Unknown]

NARRATIVE: CASE EVENT DATE: 20220105
